FAERS Safety Report 6649707-6 (Version None)
Quarter: 2010Q1

REPORT INFORMATION
  Report Type: 
  Country: None (occurrence: None)
  Receive Date: 20100324
  Receipt Date: 20100324
  Transmission Date: 20100710
  Serious: No
  Sender: FDA-Public Use
  Company Number: None

PATIENT

DRUGS (2)
  1. AMBIEN [Suspect]
     Indication: BIPOLAR DISORDER
  2. AMBIEN [Suspect]
     Indication: HYPERTENSION

REACTIONS (13)
  - ALCOHOL USE [None]
  - ANGER [None]
  - CONDITION AGGRAVATED [None]
  - DEPRESSION [None]
  - FALL [None]
  - FEAR [None]
  - FEELING ABNORMAL [None]
  - LACERATION [None]
  - MUSCULAR WEAKNESS [None]
  - OEDEMA PERIPHERAL [None]
  - PAIN IN EXTREMITY [None]
  - SOMNAMBULISM [None]
  - THINKING ABNORMAL [None]
